FAERS Safety Report 23809009 (Version 1)
Quarter: 2024Q2

REPORT INFORMATION
  Report Type: Spontaneous
  Country: US (occurrence: None)
  Receive Date: 20240501
  Receipt Date: 20240501
  Transmission Date: 20240716
  Serious: Yes (Hospitalization)
  Sender: FDA-Public Use
  Company Number: None

PATIENT
  Age: 93 Year
  Sex: Male
  Weight: 109 kg

DRUGS (1)
  1. OMEPRAZOLE [Suspect]
     Active Substance: DONEPEZIL HYDROCHLORIDE\OMEPRAZOLE\OMEPRAZOLE MAGNESIUM
     Indication: Gastrooesophageal reflux disease
     Dosage: FREQUENCY : DAILY;?TAKE ONE CAPSULE BY MOUTH EVERY DAY FOR STOMACH ACID
     Route: 048
     Dates: start: 20200727, end: 20221212

REACTIONS (2)
  - Pemphigoid [None]
  - Rash [None]

NARRATIVE: CASE EVENT DATE: 20221212
